FAERS Safety Report 9465084 (Version 2)
Quarter: 2013Q3

REPORT INFORMATION
  Report Type: Spontaneous
  Country: FR (occurrence: FR)
  Receive Date: 20130819
  Receipt Date: 20130819
  Transmission Date: 20140515
  Serious: Yes (Hospitalization, Other)
  Sender: FDA-Public Use
  Company Number: FR-EISAI INC-E2090-01098-SPO-FR

PATIENT
  Age: 32 Year
  Sex: Female
  Weight: 62 kg

DRUGS (5)
  1. ZONISAMIDE [Suspect]
     Indication: EPILEPSY
     Route: 048
     Dates: start: 20090422
  2. ZONISAMIDE [Suspect]
     Dosage: INCREASED DOSE UNKNOWN
     Route: 048
     Dates: end: 20100125
  3. KEPPRA [Concomitant]
     Indication: EPILEPSY
     Route: 048
     Dates: start: 20071115
  4. DEPAKENE CHRONO [Concomitant]
     Indication: EPILEPSY
     Route: 048
     Dates: start: 1995
  5. MICROPAKINE [Concomitant]
     Dosage: BEING DECREASED

REACTIONS (3)
  - Delirium [Unknown]
  - Persecutory delusion [Recovering/Resolving]
  - Acute psychosis [Unknown]
